FAERS Safety Report 20362250 (Version 1)
Quarter: 2022Q1

REPORT INFORMATION
  Report Type: Spontaneous
  Country: US (occurrence: US)
  Receive Date: 20220121
  Receipt Date: 20220121
  Transmission Date: 20220423
  Serious: No
  Sender: FDA-Public Use
  Company Number: US-GSKCCFUS-Case-01269325_AE-74183

PATIENT
  Age: 55 Year
  Sex: Female

DRUGS (1)
  1. SOTROVIMAB [Suspect]
     Active Substance: SOTROVIMAB
     Indication: Product used for unknown indication
     Dosage: 500 MG
     Dates: start: 20220114

REACTIONS (4)
  - Blood pressure decreased [Recovered/Resolved]
  - Ocular hyperaemia [Not Recovered/Not Resolved]
  - Conjunctivitis [Not Recovered/Not Resolved]
  - Rash [Recovered/Resolved]

NARRATIVE: CASE EVENT DATE: 20220114
